FAERS Safety Report 7569195-5 (Version None)
Quarter: 2011Q2

REPORT INFORMATION
  Report Type: 
  Country: None (occurrence: None)
  Receive Date: 20110623
  Receipt Date: 20110609
  Transmission Date: 20111010
  Serious: Yes (Hospitalization, Other)
  Sender: FDA-Public Use
  Company Number: PHHY2011CA31822

PATIENT
  Sex: Male

DRUGS (3)
  1. TYLENOL-500 [Concomitant]
     Dosage: UNK
  2. ZOLEDRONIC ACID [Suspect]
     Indication: OSTEOPOROSIS
     Dosage: 5 MG,
     Route: 042
     Dates: start: 20100922
  3. ARTHROTEC [Concomitant]
     Dosage: UNK

REACTIONS (6)
  - PARAESTHESIA [None]
  - SCIATICA [None]
  - ARTHRALGIA [None]
  - FALL [None]
  - PAIN IN EXTREMITY [None]
  - BONE PAIN [None]
